FAERS Safety Report 5711855-2 (Version None)
Quarter: 2008Q2

REPORT INFORMATION
  Report Type: 
  Country: None (occurrence: None)
  Receive Date: 20080421
  Receipt Date: 20080325
  Transmission Date: 20081010
  Serious: No
  Sender: FDA-Public Use
  Company Number: US-BOEHRINGER INGELHEIM GMBH, GERMANY-2008-BP-04604BP

PATIENT
  Sex: Female

DRUGS (7)
  1. COMBIVENT [Suspect]
     Indication: ASTHMA
     Route: 055
     Dates: start: 20030101
  2. UNIPHYL [Concomitant]
     Indication: ASTHMA
  3. NEXIUM [Concomitant]
     Indication: DYSPEPSIA
  4. ZYRTEC [Concomitant]
     Indication: HYPERSENSITIVITY
  5. TYLENOL [Concomitant]
     Indication: ARTHRITIS
  6. DEPO-MEDROL [Concomitant]
     Indication: ARTHRITIS
  7. XANAX [Concomitant]
     Indication: BIPOLAR DISORDER

REACTIONS (4)
  - ASTHENIA [None]
  - CHOLELITHIASIS [None]
  - DIZZINESS [None]
  - PYREXIA [None]
